FAERS Safety Report 18356337 (Version 1)
Quarter: 2020Q4

REPORT INFORMATION
  Report Type: Report from Study
  Country: US (occurrence: US)
  Receive Date: 20201007
  Receipt Date: 20201007
  Transmission Date: 20210114
  Serious: Yes (Hospitalization, Other)
  Sender: FDA-Public Use
  Company Number: US-JNJFOC-20200950620

PATIENT
  Age: 55 Year
  Sex: Female

DRUGS (9)
  1. SPRAVATO [Suspect]
     Active Substance: ESKETAMINE
     Indication: DEPRESSION
     Dosage: 56 MG, 2 TOTAL DOSES
     Dates: start: 20190729, end: 20190802
  2. SPRAVATO [Suspect]
     Active Substance: ESKETAMINE
     Dates: start: 20200924, end: 20200924
  3. TRINTELLIX [Concomitant]
     Active Substance: VORTIOXETINE HYDROBROMIDE
  4. REXULTI [Concomitant]
     Active Substance: BREXPIPRAZOLE
  5. SPRAVATO [Suspect]
     Active Substance: ESKETAMINE
     Dosage: 84MG,  60 TOTAL DOSE
     Dates: start: 20190805, end: 20200915
  6. PRAZOR [Concomitant]
  7. CYMBALTA [Concomitant]
     Active Substance: DULOXETINE HYDROCHLORIDE
     Dosage: 30 MG IN AM AND 90 MG AT HS
  8. LAMICTAL [Concomitant]
     Active Substance: LAMOTRIGINE
  9. XANAX [Concomitant]
     Active Substance: ALPRAZOLAM
     Dosage: 4 TIMES DAILY AS NEEDED

REACTIONS (2)
  - Sedation [Recovered/Resolved]
  - Dissociation [Recovered/Resolved]

NARRATIVE: CASE EVENT DATE: 20200924
